FAERS Safety Report 12071698 (Version 5)
Quarter: 2016Q3

REPORT INFORMATION
  Report Type: Report from Study
  Country: US (occurrence: US)
  Receive Date: 20160212
  Receipt Date: 20160921
  Transmission Date: 20161109
  Serious: Yes (Other)
  Sender: FDA-Public Use
  Company Number: PHEH2016US003224

PATIENT
  Age: 59 Year
  Sex: Female
  Weight: 90.7 kg

DRUGS (2)
  1. CLINDAMYCIN [Suspect]
     Active Substance: CLINDAMYCIN\CLINDAMYCIN PHOSPHATE
     Indication: PRODUCT USED FOR UNKNOWN INDICATION
     Route: 065
  2. GILENYA [Suspect]
     Active Substance: FINGOLIMOD HYDROCHLORIDE
     Indication: MULTIPLE SCLEROSIS
     Dosage: 0.5 MG, QD
     Route: 048
     Dates: start: 20160209

REACTIONS (10)
  - Post procedural swelling [Unknown]
  - Post procedural contusion [Unknown]
  - Pain [Unknown]
  - Decreased immune responsiveness [Unknown]
  - Nasal congestion [Unknown]
  - Fatigue [Unknown]
  - Feeling abnormal [Unknown]
  - Blood pressure decreased [Recovered/Resolved]
  - Tooth fracture [Unknown]
  - Malaise [Unknown]

NARRATIVE: CASE EVENT DATE: 20160209
